FAERS Safety Report 6616510-2 (Version None)
Quarter: 2010Q1

REPORT INFORMATION
  Report Type: 
  Country: None (occurrence: None)
  Receive Date: 20100305
  Receipt Date: 20100302
  Transmission Date: 20100710
  Serious: Yes (Other)
  Sender: FDA-Public Use
  Company Number: KR-GENENTECH-298738

PATIENT
  Sex: Male

DRUGS (2)
  1. RANIBIZUMAB [Suspect]
     Indication: MACULAR DEGENERATION
     Dosage: 0.5 MG, SINGLE
     Route: 031
     Dates: start: 20100113
  2. RABEPRAZOLE SODIUM [Concomitant]
     Indication: GASTROOESOPHAGEAL REFLUX DISEASE
     Dosage: UNK
     Dates: start: 20090508

REACTIONS (1)
  - DETACHMENT OF RETINAL PIGMENT EPITHELIUM [None]
